FAERS Safety Report 10632014 (Version 1)
Quarter: 2014Q4

REPORT INFORMATION
  Report Type: Report from Study
  Country: US (occurrence: US)
  Receive Date: 20141205
  Receipt Date: 20141205
  Transmission Date: 20150529
  Serious: Yes (Hospitalization)
  Sender: FDA-Public Use
  Company Number: US-ROCHE-1501366

PATIENT
  Age: 38 Year
  Sex: Female
  Weight: 103 kg

DRUGS (11)
  1. PERTUZUMAB [Suspect]
     Active Substance: PERTUZUMAB
     Indication: BREAST CANCER
     Dosage: OVER 60 MIN ON DAY 1 IN CYCLE 1
     Route: 042
     Dates: start: 20140815
  2. DOCETAXEL. [Suspect]
     Active Substance: DOCETAXEL
     Indication: BREAST CANCER
     Dosage: OVER 60 MIN ON DAY 1 IN CYCLE 1, 2-6
     Route: 042
     Dates: start: 20140815
  3. CARBOPLATIN. [Suspect]
     Active Substance: CARBOPLATIN
     Indication: BREAST CANCER
     Dosage: AUC=6 MG/ML/MIN IV OVER 30-60MIN ON DAY 1 IN CYCLE 1, 2-6
     Route: 042
     Dates: start: 20140815
  4. ARIMIDEX [Concomitant]
     Active Substance: ANASTROZOLE
     Indication: BREAST CANCER
     Route: 048
     Dates: start: 20140815
  5. LUPRON [Concomitant]
     Active Substance: LEUPROLIDE ACETATE
     Indication: BREAST CANCER
     Route: 058
     Dates: start: 20140815
  6. DOCETAXEL. [Suspect]
     Active Substance: DOCETAXEL
     Route: 042
     Dates: start: 20140905
  7. LUPRON [Concomitant]
     Active Substance: LEUPROLIDE ACETATE
     Route: 058
     Dates: start: 20140915
  8. TRASTUZUMAB [Suspect]
     Active Substance: TRASTUZUMAB
     Indication: BREAST CANCER
     Dosage: OVER 90 MIN ON DAY 1 IN CYCLE 1
     Route: 042
     Dates: start: 20140815
  9. PERTUZUMAB [Suspect]
     Active Substance: PERTUZUMAB
     Dosage: OVER 30-60 MIN ON DAY IN CYCLE 2-6
     Route: 042
     Dates: start: 20140905
  10. TRASTUZUMAB [Suspect]
     Active Substance: TRASTUZUMAB
     Dosage: OVER 30-60 MIN ON DAY IN CYCLE 2-6  (IT WAS RECOMMENDED THAT ADJUVANT TRASTUZUMAB BE CONTINUED FOR A
     Route: 042
     Dates: start: 20140905
  11. CARBOPLATIN. [Suspect]
     Active Substance: CARBOPLATIN
     Route: 042
     Dates: start: 20140905

REACTIONS (4)
  - Nausea [Recovering/Resolving]
  - Vomiting [Recovering/Resolving]
  - Diarrhoea [Recovered/Resolved]
  - Dehydration [Recovering/Resolving]

NARRATIVE: CASE EVENT DATE: 20140912
